FAERS Safety Report 11705647 (Version 1)
Quarter: 2015Q4

REPORT INFORMATION
  Report Type: Spontaneous
  Country: FR (occurrence: FR)
  Receive Date: 20151106
  Receipt Date: 20151106
  Transmission Date: 20160304
  Serious: Yes (Death, Other)
  Sender: FDA-Public Use
  Company Number: FR-PFIZER INC-2015373398

PATIENT
  Age: 83 Year
  Sex: Male

DRUGS (13)
  1. COLIMYCIN [Concomitant]
     Dosage: 6 MIU DAILY
     Dates: end: 201509
  2. TYGACIL [Suspect]
     Active Substance: TIGECYCLINE
     Dosage: 50 MG, 2X/DAY
     Route: 042
     Dates: start: 20151009, end: 20151011
  3. BISOCE [Concomitant]
     Active Substance: BISOPROLOL
     Dosage: 2.5 MG, 2X/DAY
     Route: 048
     Dates: end: 20151001
  4. LEVOFLOXACINE ARROW [Concomitant]
     Active Substance: LEVOFLOXACIN
     Indication: OSTEOMYELITIS
  5. LEVOFLOXACINE ARROW [Concomitant]
     Active Substance: LEVOFLOXACIN
     Indication: OSTEOMYELITIS
     Dosage: 250 MG, 2X/DAY
     Route: 048
     Dates: start: 20150914
  6. COLIMYCIN [Concomitant]
     Dosage: 12 MIU DAILY
  7. LEVOFLOXACINE ARROW [Concomitant]
     Active Substance: LEVOFLOXACIN
     Indication: ARTHRITIS INFECTIVE
     Dosage: 125 MG, 2X/DAY
     Route: 042
     Dates: end: 20151011
  8. TYGACIL [Suspect]
     Active Substance: TIGECYCLINE
     Indication: OSTEOMYELITIS
     Dosage: 100 MG, 2X/DAY
     Route: 042
     Dates: start: 20150914, end: 20151008
  9. TIENAM [Concomitant]
     Active Substance: CILASTATIN SODIUM\IMIPENEM
     Indication: OSTEOMYELITIS
     Dosage: 1 DF, 2X/DAY
     Route: 042
     Dates: start: 20150925, end: 20151011
  10. COLIMYCIN [Concomitant]
     Dosage: 4 MIU DAILY
  11. HEPARIN SODIUM. [Suspect]
     Active Substance: HEPARIN SODIUM
     Dosage: 25000 IU, 1X/DAY
     Route: 042
     Dates: start: 201508, end: 20151005
  12. INEXIUM [Concomitant]
     Active Substance: ESOMEPRAZOLE
     Dosage: 40 MG, 1X/DAY
     Route: 048
  13. INEXIUM [Concomitant]
     Active Substance: ESOMEPRAZOLE
     Dosage: 80 MG, 1X/DAY
     Route: 042
     Dates: end: 20151011

REACTIONS (6)
  - Anaemia [Fatal]
  - Melaena [Recovered/Resolved]
  - Shock haemorrhagic [Recovered/Resolved]
  - Lipase increased [Not Recovered/Not Resolved]
  - Thrombocytopenia [Fatal]
  - Hypofibrinogenaemia [Fatal]

NARRATIVE: CASE EVENT DATE: 20151002
